FAERS Safety Report 10930405 (Version 1)
Quarter: 2015Q1

REPORT INFORMATION
  Report Type: Spontaneous
  Country: FR (occurrence: FR)
  Receive Date: 20150319
  Receipt Date: 20150319
  Transmission Date: 20150721
  Serious: Yes (Hospitalization)
  Sender: FDA-Public Use
  Company Number: FR-ASTRAZENECA-2015SE23085

PATIENT
  Age: 76 Year
  Sex: Female

DRUGS (10)
  1. BRILIQUE [Suspect]
     Active Substance: TICAGRELOR
     Indication: ACUTE CORONARY SYNDROME
     Route: 048
     Dates: end: 20150225
  2. PERINDOPRIL [Concomitant]
     Active Substance: PERINDOPRIL
     Route: 048
  3. COLCHICINE. [Concomitant]
     Active Substance: COLCHICINE
     Route: 048
  4. FUROSEMIDE. [Concomitant]
     Active Substance: FUROSEMIDE
     Route: 048
  5. DOLIPRANE [Concomitant]
     Active Substance: ACETAMINOPHEN
     Route: 048
  6. NITRIDERM TRANS DERMAL [Concomitant]
  7. BISOCE [Concomitant]
     Active Substance: BISOPROLOL
     Route: 048
  8. INEXIUM [Concomitant]
     Active Substance: ESOMEPRAZOLE
     Route: 048
  9. KARDEGIC [Suspect]
     Active Substance: ASPIRIN LYSINE
     Indication: ACUTE CORONARY SYNDROME
     Route: 048
  10. LOSARTAN [Concomitant]
     Active Substance: LOSARTAN
     Route: 048

REACTIONS (1)
  - Microcytic anaemia [Recovered/Resolved]

NARRATIVE: CASE EVENT DATE: 20150215
